FAERS Safety Report 9189695 (Version 2)
Quarter: 2013Q1

REPORT INFORMATION
  Report Type: Spontaneous
  Country: US (occurrence: None)
  Receive Date: 20130322
  Receipt Date: 20130329
  Transmission Date: 20140127
  Serious: Yes (Other)
  Sender: FDA-Public Use
  Company Number: JPI-P-030530

PATIENT
  Age: 52 Year
  Sex: Female

DRUGS (5)
  1. XYREM [Suspect]
     Indication: FIBROMYALGIA
     Dosage: 4.5 GM (2.25 GM, 2 IN 1 D), ORAL
     Route: 048
     Dates: start: 20081112
  2. TRAMADOL [Concomitant]
  3. VENLAFAXINE HYDROCHLORIDE [Concomitant]
  4. FENOFIBRATE [Concomitant]
  5. NEBIVOLOL HYDROCHLORIDE [Concomitant]

REACTIONS (1)
  - Diabetes mellitus [None]
